FAERS Safety Report 8765503 (Version 2)
Quarter: 2012Q4

REPORT INFORMATION
  Report Type: 
  Country: US (occurrence: US)
  Receive Date: 20120903
  Receipt Date: 20120927
  Transmission Date: 20130627
  Serious: Yes (Other)
  Sender: FDA-Public Use
  Company Number: US-PFIZER INC-2012212669

PATIENT
  Age: 54 Year
  Sex: Male

DRUGS (1)
  1. REVATIO [Suspect]
     Dosage: 20 mg, 3x/day
     Dates: start: 20110801, end: 20120704

REACTIONS (1)
  - Cardiac disorder [Unknown]
